FAERS Safety Report 20164283 (Version 1)
Quarter: 2021Q4

REPORT INFORMATION
  Report Type: Spontaneous
  Country: CA (occurrence: CA)
  Receive Date: 20211209
  Receipt Date: 20211209
  Transmission Date: 20220303
  Serious: Yes (Hospitalization)
  Sender: FDA-Public Use
  Company Number: CA-TEVA-2021-CA-1984568

PATIENT
  Age: 79 Year
  Sex: Female
  Weight: 78 kg

DRUGS (1)
  1. PREGABALIN [Suspect]
     Active Substance: PREGABALIN
     Indication: Back pain
     Dosage: 225 MILLIGRAM DAILY;
     Route: 048

REACTIONS (5)
  - Cardiac failure [Recovering/Resolving]
  - Dyspnoea [Recovering/Resolving]
  - Hypervolaemia [Recovering/Resolving]
  - Oedema peripheral [Recovering/Resolving]
  - Oxygen saturation decreased [Recovering/Resolving]
